FAERS Safety Report 6772252-4 (Version None)
Quarter: 2010Q2

REPORT INFORMATION
  Report Type: 
  Country: None (occurrence: None)
  Receive Date: 20100616
  Receipt Date: 20091211
  Transmission Date: 20101027
  Serious: No
  Sender: FDA-Public Use
  Company Number: US-ASTRAZENECA-2009SE25939

PATIENT
  Age: 37 Year
  Sex: Female
  Weight: 62.1 kg

DRUGS (2)
  1. PULMICORT FLEXHALER [Suspect]
     Dosage: BID
     Route: 055
     Dates: start: 20090501
  2. PULMICORT FLEXHALER [Suspect]
     Dosage: BID
     Route: 055
     Dates: start: 20090501

REACTIONS (1)
  - ASTHMA [None]
